FAERS Safety Report 24760099 (Version 1)
Quarter: 2024Q4

REPORT INFORMATION
  Report Type: Spontaneous
  Country: NL (occurrence: NL)
  Receive Date: 20241220
  Receipt Date: 20241220
  Transmission Date: 20250114
  Serious: Yes (Life-Threatening)
  Sender: BEXIMCO PHARMACEUTICALS
  Company Number: NL-BEXIMCO-2024BEX00057

PATIENT
  Age: 15 Year
  Sex: Female

DRUGS (8)
  1. BACLOFEN [Suspect]
     Active Substance: BACLOFEN
     Indication: Cerebral palsy
     Dosage: 507MCG/D (FOUR BOLUSES OF 30, 105, 80, AND 105 MCG A DAY)
     Route: 037
     Dates: start: 2022
  2. BACLOFEN [Suspect]
     Active Substance: BACLOFEN
     Indication: Cerebral palsy
     Dosage: 5 MG, 3X/DAY
     Route: 048
     Dates: start: 2022
  3. MORPHINE [Suspect]
     Active Substance: MORPHINE
     Indication: Analgesic therapy
     Dosage: 4 MG
     Route: 042
     Dates: start: 2022
  4. VALPROIC ACID [Concomitant]
     Active Substance: VALPROIC ACID
     Dosage: 500 MG, 2X/DAY
  5. PERAMPANEL [Concomitant]
     Active Substance: PERAMPANEL
     Dosage: 4 MG, 1X/DAY
  6. APREPITANT [Concomitant]
     Active Substance: APREPITANT
     Dosage: 80 MG, 1X/DAY
  7. OMEPRAZOLE [Concomitant]
     Active Substance: OMEPRAZOLE
     Dosage: 20 MG, 2X/DAY
  8. GLYCOPYRRONIUM [Concomitant]
     Active Substance: GLYCOPYRRONIUM
     Dosage: 1280 ?G, 2X/DAY

REACTIONS (3)
  - Drug interaction [Recovered/Resolved]
  - Respiratory depression [Recovered/Resolved]
  - Overdose [Recovered/Resolved]

NARRATIVE: CASE EVENT DATE: 20220101
